FAERS Safety Report 22099448 (Version 1)
Quarter: 2023Q1

REPORT INFORMATION
  Report Type: Spontaneous
  Country: US (occurrence: US)
  Receive Date: 20230315
  Receipt Date: 20230315
  Transmission Date: 20230417
  Serious: No
  Sender: FDA-Public Use
  Company Number: US-BAYER-2023A025591

PATIENT
  Sex: Female

DRUGS (2)
  1. GIANVI [Suspect]
     Active Substance: DROSPIRENONE\ETHINYL ESTRADIOL
     Indication: Contraception
  2. VESTURA [Concomitant]
     Active Substance: DROSPIRENONE\ETHINYL ESTRADIOL

REACTIONS (3)
  - Abdominal distension [Unknown]
  - Acne [Unknown]
  - Rash [Unknown]
